FAERS Safety Report 4527109-6 (Version None)
Quarter: 2004Q4

REPORT INFORMATION
  Report Type: 
  Country: None (occurrence: None)
  Receive Date: 20041201
  Receipt Date: 20041025
  Transmission Date: 20050328
  Serious: Yes (Life-Threatening, Hospitalization)
  Sender: FDA-Public Use
  Company Number: US096758

PATIENT
  Age: 54 Year
  Sex: Female

DRUGS (3)
  1. ENBREL [Suspect]
     Indication: PSORIASIS
     Dosage: 50 MG, 2 IN 1 WEEKS, SC; 25 MG, 2 IN 1 WEEKS, SC
     Route: 058
     Dates: start: 20040101, end: 20040501
  2. ENBREL [Suspect]
     Indication: PSORIASIS
     Dosage: 50 MG, 2 IN 1 WEEKS, SC; 25 MG, 2 IN 1 WEEKS, SC
     Route: 058
     Dates: start: 20040501, end: 20040605
  3. NSAID [Concomitant]

REACTIONS (3)
  - BACK PAIN [None]
  - JOINT SWELLING [None]
  - SEPTIC SHOCK [None]
